FAERS Safety Report 14280539 (Version 1)
Quarter: 2017Q4

REPORT INFORMATION
  Report Type: Spontaneous
  Country: US (occurrence: None)
  Receive Date: 20171212
  Receipt Date: 20171212
  Transmission Date: 20180321
  Serious: Yes (Death)
  Sender: FDA-Public Use
  Company Number: None

PATIENT
  Age: 50 Year
  Sex: Female

DRUGS (21)
  1. ETOPOSIDE 50MG MYLAN [Suspect]
     Active Substance: ETOPOSIDE
     Indication: OVARIAN CANCER
     Dosage: 50MG 14 DAYS ON THEN 14 DAYS OFF DAILY ORAL
     Route: 048
     Dates: start: 20171030
  2. AMITRIPTYLINE [Concomitant]
     Active Substance: AMITRIPTYLINE
  3. OLANZAPINE. [Concomitant]
     Active Substance: OLANZAPINE
  4. OXYBUTYNIN. [Concomitant]
     Active Substance: OXYBUTYNIN CHLORIDE
  5. OMEPRAZOLE. [Concomitant]
     Active Substance: OMEPRAZOLE
  6. PROCHLORPER [Concomitant]
  7. FENTYL [Concomitant]
     Active Substance: FENTANYL
  8. ONDANSETRON [Concomitant]
     Active Substance: ONDANSETRON
  9. CIPROFLOXACIN. [Concomitant]
     Active Substance: CIPROFLOXACIN
  10. SENEXON-S [Concomitant]
     Active Substance: DOCUSATE SODIUM\SENNOSIDES A AND B
  11. DEXAMETHASONE. [Concomitant]
     Active Substance: DEXAMETHASONE
  12. OXYCODONE/APAP [Concomitant]
     Active Substance: ACETAMINOPHEN\OXYCODONE HYDROCHLORIDE
  13. PROMETHAZINE [Concomitant]
     Active Substance: PROMETHAZINE\PROMETHAZINE HYDROCHLORIDE
  14. LORAZEPAM. [Concomitant]
     Active Substance: LORAZEPAM
  15. LIDOCAINE. [Concomitant]
     Active Substance: LIDOCAINE
  16. MIRTAZAPINE. [Concomitant]
     Active Substance: MIRTAZAPINE
  17. PRAVASTATIN. [Concomitant]
     Active Substance: PRAVASTATIN
  18. SYNTHROID [Concomitant]
     Active Substance: LEVOTHYROXINE SODIUM
  19. HYDROCODONE BITARTRATE AND ACETAMINOPHEN [Concomitant]
     Active Substance: ACETAMINOPHEN\HYDROCODONE BITARTRATE
  20. AMOX/K CLV [Concomitant]
  21. METOCLOPRAM [Concomitant]
     Active Substance: METOCLOPRAMIDE

REACTIONS (1)
  - Death [None]
